FAERS Safety Report 25896624 (Version 1)
Quarter: 2025Q4

REPORT INFORMATION
  Report Type: Spontaneous
  Country: EU (occurrence: EU)
  Receive Date: 20251008
  Receipt Date: 20251008
  Transmission Date: 20260118
  Serious: Yes (Other)
  Sender: MYLAN
  Company Number: None

PATIENT
  Sex: Male

DRUGS (8)
  1. PREGABALIN [Suspect]
     Active Substance: PREGABALIN
     Indication: Product used for unknown indication
     Dosage: 20 DOSAGE FORM, QD (1 DF IS EQUAL TO 1 TABLET)
     Dates: start: 20250731, end: 20250731
  2. PREGABALIN [Suspect]
     Active Substance: PREGABALIN
     Dosage: 20 DOSAGE FORM, QD (1 DF IS EQUAL TO 1 TABLET)
     Route: 048
     Dates: start: 20250731, end: 20250731
  3. PREGABALIN [Suspect]
     Active Substance: PREGABALIN
     Dosage: 20 DOSAGE FORM, QD (1 DF IS EQUAL TO 1 TABLET)
     Route: 048
     Dates: start: 20250731, end: 20250731
  4. PREGABALIN [Suspect]
     Active Substance: PREGABALIN
     Dosage: 20 DOSAGE FORM, QD (1 DF IS EQUAL TO 1 TABLET)
     Dates: start: 20250731, end: 20250731
  5. QUETIAPINE [Suspect]
     Active Substance: QUETIAPINE
     Indication: Product used for unknown indication
     Dosage: 6000 MILLIGRAM, QD (20 X 300 MILLIGRAM)
     Dates: start: 20250731, end: 20250731
  6. QUETIAPINE [Suspect]
     Active Substance: QUETIAPINE
     Dosage: 6000 MILLIGRAM, QD (20 X 300 MILLIGRAM)
     Route: 048
     Dates: start: 20250731, end: 20250731
  7. QUETIAPINE [Suspect]
     Active Substance: QUETIAPINE
     Dosage: 6000 MILLIGRAM, QD (20 X 300 MILLIGRAM)
     Route: 048
     Dates: start: 20250731, end: 20250731
  8. QUETIAPINE [Suspect]
     Active Substance: QUETIAPINE
     Dosage: 6000 MILLIGRAM, QD (20 X 300 MILLIGRAM)
     Dates: start: 20250731, end: 20250731

REACTIONS (4)
  - Suicide attempt [Unknown]
  - Oxygen saturation decreased [Unknown]
  - Bradycardia [Unknown]
  - Intentional overdose [Unknown]

NARRATIVE: CASE EVENT DATE: 20250731
